FAERS Safety Report 5751734-8 (Version None)
Quarter: 2008Q2

REPORT INFORMATION
  Report Type: 
  Country: None (occurrence: None)
  Receive Date: 20080529
  Receipt Date: 20080516
  Transmission Date: 20081010
  Serious: Yes (Hospitalization, Other)
  Sender: FDA-Public Use
  Company Number: JP-BRISTOL-MYERS SQUIBB COMPANY-14178560

PATIENT
  Age: 68 Year
  Sex: Male

DRUGS (20)
  1. PRAVASTATIN SODIUM [Suspect]
     Indication: HYPERLIPIDAEMIA
     Dosage: STOPPED ON 08-JAN-2007 AND RESTARTED ON 12-JAN-2007
     Dates: start: 19960412
  2. ALLOPURINOL [Suspect]
     Indication: GOUT
     Dosage: INTERRUPTED ON UNSPEC. DATE, RESTARTED ON 12-JAN-2007, WITHDRAWN FROM STUDY ON 20-AUG-2007
     Dates: start: 20040421, end: 20070820
  3. VALPROATE SODIUM [Suspect]
     Indication: DEPRESSION
     Dosage: STOPPED ON 12-OCT-2006, RESTARTED ON 19-JAN-2007
     Dates: start: 20060727
  4. PLETAL [Concomitant]
     Dosage: INTERRUPTED ON 22-SEP-2006 AND RESTARTED ON 06-OCT-2006
     Dates: start: 20060909
  5. ABILIFY [Concomitant]
     Dates: start: 20060927, end: 20070821
  6. URSO 250 [Concomitant]
     Dates: start: 19961220
  7. DEPAS [Concomitant]
     Dates: start: 20030815, end: 20070820
  8. NITRAZEPAM [Concomitant]
     Dates: start: 20040526
  9. PAXIL [Concomitant]
     Dates: start: 20040728, end: 20070618
  10. LITHIUM CARBONATE [Concomitant]
     Dates: start: 20060727, end: 20070821
  11. LENDORMIN [Concomitant]
     Dates: start: 20060929, end: 20070118
  12. VEGETAMIN [Concomitant]
     Dates: start: 20061013
  13. NIZATIDINE [Concomitant]
     Dates: start: 20061027, end: 20070108
  14. GLYSENNID [Concomitant]
     Dates: start: 20061120, end: 20070108
  15. AMOXAN [Concomitant]
     Dates: start: 20061222, end: 20070821
  16. LAXOBERON [Concomitant]
     Dates: start: 20061227
  17. MAGMITT [Concomitant]
     Dates: start: 20070209
  18. TAKEPRON [Concomitant]
     Dates: start: 20070611
  19. AMOBAN [Concomitant]
     Dates: start: 20070625
  20. TRYPTANOL [Concomitant]
     Dates: start: 20070815, end: 20070820

REACTIONS (4)
  - ANAEMIA [None]
  - CEREBRAL INFARCTION [None]
  - HEPATIC FUNCTION ABNORMAL [None]
  - PYREXIA [None]
